FAERS Safety Report 25800133 (Version 1)
Quarter: 2025Q3

REPORT INFORMATION
  Report Type: Report from Study
  Country: US (occurrence: US)
  Receive Date: 20250915
  Receipt Date: 20250915
  Transmission Date: 20251021
  Serious: Yes (Hospitalization, Other)
  Sender: ABBVIE
  Company Number: US-ABBVIE-6451780

PATIENT
  Sex: Female

DRUGS (1)
  1. QULIPTA [Suspect]
     Active Substance: ATOGEPANT
     Indication: Bipolar disorder
     Route: 048
     Dates: end: 202509

REACTIONS (3)
  - Seizure [Unknown]
  - Migraine [Unknown]
  - Drug ineffective [Unknown]
